FAERS Safety Report 7944103-3 (Version None)
Quarter: 2011Q4

REPORT INFORMATION
  Report Type: 
  Country: None (occurrence: None)
  Receive Date: 20111128
  Receipt Date: 20111117
  Transmission Date: 20120403
  Serious: Yes (Other)
  Sender: FDA-Public Use
  Company Number: US-ASTRAZENECA-2011SE49851

PATIENT
  Age: 60 Year
  Sex: Female

DRUGS (6)
  1. NEXIUM [Suspect]
     Route: 048
  2. MIRALAX [Concomitant]
  3. LORTAB [Concomitant]
     Indication: PAIN
     Dosage: 1 TO 2 TABLETS EVERY 4 HOURS AS REQUIRED
     Route: 048
  4. DIAZEPAM [Concomitant]
  5. ATENOLOL [Suspect]
     Route: 048
  6. RANITIDINE [Concomitant]

REACTIONS (22)
  - BIPOLAR DISORDER [None]
  - PULMONARY CONGESTION [None]
  - HYPERTENSION [None]
  - CHEST PAIN [None]
  - ANXIETY [None]
  - HYPERLIPIDAEMIA [None]
  - COUGH [None]
  - WHEEZING [None]
  - INSOMNIA [None]
  - OESOPHAGEAL OBSTRUCTION [None]
  - CERVICAL CYST [None]
  - INTERVERTEBRAL DISC PROTRUSION [None]
  - HIATUS HERNIA [None]
  - SPINAL COLUMN STENOSIS [None]
  - GASTROOESOPHAGEAL REFLUX DISEASE [None]
  - BRONCHOSPASM [None]
  - MIGRAINE [None]
  - NECK PAIN [None]
  - DRUG DOSE OMISSION [None]
  - INTERVERTEBRAL DISC DISORDER [None]
  - BRONCHIAL HYPERREACTIVITY [None]
  - DEPRESSION [None]
